FAERS Safety Report 6147289-9 (Version None)
Quarter: 2009Q2

REPORT INFORMATION
  Report Type: 
  Country: None (occurrence: None)
  Receive Date: 20090408
  Receipt Date: 20090331
  Transmission Date: 20091009
  Serious: Yes (Hospitalization)
  Sender: FDA-Public Use
  Company Number: FR-WYE-H08808209

PATIENT
  Sex: Female

DRUGS (13)
  1. INIPOMP [Suspect]
     Indication: PROPHYLAXIS AGAINST GASTROINTESTINAL ULCER
     Route: 048
  2. CORDARONE [Suspect]
     Indication: TACHYCARDIA
     Route: 048
  3. SYMBICORT [Concomitant]
  4. FORLAX [Concomitant]
  5. LOVENOX [Concomitant]
     Dosage: UNKNOWN
     Dates: start: 20090112
  6. COZAAR [Suspect]
     Indication: HYPERTENSION
     Route: 048
  7. ACETYLCYSTEINE [Concomitant]
     Dosage: UNKNOWN
     Dates: start: 20081226
  8. COUMADIN [Concomitant]
  9. AERIUS [Concomitant]
  10. OSTRAM [Concomitant]
  11. SPECIAFOLDINE [Concomitant]
  12. LASIX [Suspect]
     Indication: HYPERTENSION
     Dosage: 40 MG, FREQUENCY UNKNOWN
     Route: 048
     Dates: start: 20090112, end: 20090114
  13. PREDNISOLONE [Concomitant]
     Dosage: UNKNOWN
     Dates: start: 20081226

REACTIONS (2)
  - HYPONATRAEMIA [None]
  - INAPPROPRIATE ANTIDIURETIC HORMONE SECRETION [None]
